FAERS Safety Report 19963698 (Version 2)
Quarter: 2021Q4

REPORT INFORMATION
  Report Type: Report from Study
  Country: US (occurrence: None)
  Receive Date: 20211018
  Receipt Date: 20211207
  Transmission Date: 20220304
  Serious: Yes (Other)
  Sender: FDA-Public Use
  Company Number: US-MERCK HEALTHCARE KGAA-9271917

PATIENT
  Sex: Female

DRUGS (3)
  1. REBIF [Suspect]
     Active Substance: INTERFERON BETA-1A
     Indication: Product used for unknown indication
     Dates: start: 20150831, end: 20160909
  2. REBIF [Suspect]
     Active Substance: INTERFERON BETA-1A
     Dates: start: 20161017, end: 20170331
  3. REBIF [Suspect]
     Active Substance: INTERFERON BETA-1A
     Route: 058
     Dates: start: 20190701, end: 20210901

REACTIONS (2)
  - Condition aggravated [Unknown]
  - Loss of consciousness [Unknown]
